FAERS Safety Report 9737218 (Version 3)
Quarter: 2015Q4

REPORT INFORMATION
  Report Type: Report from Study
  Country: BR (occurrence: BR)
  Receive Date: 20131206
  Receipt Date: 20151102
  Transmission Date: 20160305
  Serious: Yes (Hospitalization, Other)
  Sender: FDA-Public Use
  Company Number: BR-ROCHE-1313530

PATIENT
  Sex: Female
  Weight: 79 kg

DRUGS (5)
  1. ENALAPRIL [Concomitant]
     Active Substance: ENALAPRIL
  2. GLIBENCLAMIDE [Concomitant]
     Active Substance: GLYBURIDE
  3. MABTHERA [Suspect]
     Active Substance: RITUXIMAB
     Indication: RHEUMATOID ARTHRITIS
     Route: 042
     Dates: start: 20120112, end: 20140508
  4. SULFASALAZINE. [Concomitant]
     Active Substance: SULFASALAZINE
     Route: 065
     Dates: start: 2005
  5. AZULFIDINE [Concomitant]
     Active Substance: SULFASALAZINE

REACTIONS (4)
  - Arthritis infective [Recovering/Resolving]
  - Arthralgia [Unknown]
  - Syncope [Recovering/Resolving]
  - Rheumatoid arthritis [Not Recovered/Not Resolved]

NARRATIVE: CASE EVENT DATE: 2013
